FAERS Safety Report 12294632 (Version 1)
Quarter: 2016Q2

REPORT INFORMATION
  Report Type: Spontaneous
  Country: US (occurrence: US)
  Receive Date: 20160422
  Receipt Date: 20160422
  Transmission Date: 20160815
  Serious: Yes (Other)
  Sender: FDA-Public Use
  Company Number: US-HOSPIRA-3237548

PATIENT
  Age: 62 Year
  Sex: Male
  Weight: 80.7 kg

DRUGS (8)
  1. PANTOPRAZOLE [Concomitant]
     Active Substance: PANTOPRAZOLE SODIUM
     Indication: PEPTIC ULCER
     Dosage: IVP
     Dates: start: 20160326, end: 20160328
  2. VANCOMYCIN [Concomitant]
     Active Substance: VANCOMYCIN
     Indication: SEPSIS
     Dosage: IVPB
     Dates: start: 20160325, end: 20160401
  3. ALBUMIN [Concomitant]
     Active Substance: ALBUMIN HUMAN
     Indication: BLOOD ALBUMIN DECREASED
     Dosage: 50 G, Q8H, IVPB
     Dates: start: 20160326, end: 20160326
  4. HEPARIN SODIUM. [Suspect]
     Active Substance: HEPARIN SODIUM
     Indication: AORTIC OCCLUSION
     Dosage: 36 U/KG/HR X 2, 5 BAGS
     Route: 042
     Dates: start: 20160325, end: 20160330
  5. HEPARIN SODIUM. [Suspect]
     Active Substance: HEPARIN SODIUM
     Indication: AORTIC OCCLUSION
     Dosage: 36 U/KG/HR X 2, 5 BAGS
     Route: 042
     Dates: start: 20160325, end: 20160330
  6. ZOSYN [Concomitant]
     Active Substance: PIPERACILLIN SODIUM\TAZOBACTAM SODIUM
     Indication: SEPSIS
     Dosage: IVPB
     Dates: start: 20160326, end: 20160402
  7. HEPARIN SODIUM. [Suspect]
     Active Substance: HEPARIN SODIUM
     Indication: AORTIC OCCLUSION
     Dosage: 26 U/KG/HR X 2, 5 BAGS
     Route: 042
     Dates: start: 20160325, end: 20160330
  8. PANTOPRAZOLE [Concomitant]
     Active Substance: PANTOPRAZOLE SODIUM
     Indication: PROPHYLAXIS
     Dosage: IVP
     Dates: start: 20160326, end: 20160328

REACTIONS (4)
  - Retroperitoneal haemorrhage [Recovered/Resolved]
  - Incorrect dose administered [Recovered/Resolved]
  - Activated partial thromboplastin time prolonged [Recovered/Resolved]
  - Drug ineffective [Recovered/Resolved]

NARRATIVE: CASE EVENT DATE: 201603
